FAERS Safety Report 9688786 (Version 4)
Quarter: 2014Q1

REPORT INFORMATION
  Report Type: Spontaneous
  Country: SE (occurrence: SE)
  Receive Date: 20131114
  Receipt Date: 20140318
  Transmission Date: 20141002
  Serious: Yes (Hospitalization)
  Sender: FDA-Public Use
  Company Number: SE-BRISTOL-MYERS SQUIBB COMPANY-19793397

PATIENT
  Age: 48 Year
  Sex: Female

DRUGS (3)
  1. ABATACEPT SUBQ INJECTION 125MG/ML [Suspect]
     Indication: PSORIATIC ARTHROPATHY
     Route: 058
     Dates: start: 20130820, end: 20131018
  2. PREDNISOLONE [Concomitant]
     Dates: start: 20101210
  3. AZATHIOPRINE [Concomitant]
     Dates: start: 20130120

REACTIONS (1)
  - Crohn^s disease [Not Recovered/Not Resolved]
